FAERS Safety Report 11652938 (Version 1)
Quarter: 2015Q4

REPORT INFORMATION
  Report Type: Spontaneous
  Country: US (occurrence: None)
  Receive Date: 20151022
  Receipt Date: 20151022
  Transmission Date: 20160304
  Serious: Yes (Death, Life-Threatening, Hospitalization)
  Sender: FDA-Public Use
  Company Number: None

PATIENT
  Age: 36 Year
  Sex: Male
  Weight: 104.33 kg

DRUGS (1)
  1. AMPHOTERICIN B. [Suspect]
     Active Substance: AMPHOTERICIN B
     Indication: FUNGAL INFECTION
     Dosage: 2-4 DAYS
     Route: 042

REACTIONS (7)
  - Cardiac arrest [None]
  - Confusional state [None]
  - Hallucination [None]
  - Blood potassium decreased [None]
  - Lethargy [None]
  - Drug level increased [None]
  - Magnesium deficiency [None]

NARRATIVE: CASE EVENT DATE: 20151007
